FAERS Safety Report 5556832-X (Version None)
Quarter: 2007Q4

REPORT INFORMATION
  Report Type: 
  Country: None (occurrence: None)
  Receive Date: 20071211
  Receipt Date: 20071211
  Transmission Date: 20080405
  Serious: No
  Sender: FDA-Public Use
  Company Number: None

PATIENT

DRUGS (2)
  1. AVELOX [Suspect]
  2. LEVAQUIN [Suspect]

REACTIONS (38)
  - ABDOMINAL DISCOMFORT [None]
  - ABDOMINAL DISTENSION [None]
  - ABNORMAL DREAMS [None]
  - ACTIVITIES OF DAILY LIVING IMPAIRED [None]
  - ANXIETY [None]
  - ARTHRALGIA [None]
  - DEPRESSION [None]
  - DIZZINESS [None]
  - DRUG TOXICITY [None]
  - EMOTIONAL DISORDER [None]
  - EPICONDYLITIS [None]
  - FEELING ABNORMAL [None]
  - FLATULENCE [None]
  - GAIT DISTURBANCE [None]
  - HEADACHE [None]
  - INSOMNIA [None]
  - JAW DISORDER [None]
  - LYMPHADENOPATHY [None]
  - MALAISE [None]
  - MUSCULOSKELETAL PAIN [None]
  - MUSCULOSKELETAL STIFFNESS [None]
  - NASAL DISORDER [None]
  - NAUSEA [None]
  - NECK PAIN [None]
  - NO THERAPEUTIC RESPONSE [None]
  - OEDEMA PERIPHERAL [None]
  - PAIN [None]
  - PAIN IN EXTREMITY [None]
  - PAIN IN JAW [None]
  - PALPITATIONS [None]
  - PARAESTHESIA [None]
  - RHINALGIA [None]
  - SWELLING [None]
  - TENDONITIS [None]
  - TINNITUS [None]
  - TOOTHACHE [None]
  - TRIGEMINAL NEURALGIA [None]
  - URINARY TRACT DISORDER [None]
